FAERS Safety Report 9184092 (Version 3)
Quarter: 2013Q2

REPORT INFORMATION
  Report Type: Report from Study
  Country: US (occurrence: US)
  Receive Date: 20121031
  Receipt Date: 20130423
  Transmission Date: 20140414
  Serious: Yes (Hospitalization, Other)
  Sender: FDA-Public Use
  Company Number: PHEH2012US021187

PATIENT
  Sex: Female
  Weight: 99.77 kg

DRUGS (21)
  1. ZOMETA [Suspect]
     Indication: PLASMA CELL MYELOMA
     Dosage: 4 MG PER 5 ML
  2. ADVAIR [Concomitant]
  3. ATENOLOL [Concomitant]
  4. BUSPAR [Concomitant]
  5. CALCIUM [Concomitant]
  6. COUMADIN [Concomitant]
  7. DEXAMETHASON [Concomitant]
  8. LASIX [Concomitant]
  9. LEXAPRO [Concomitant]
  10. MULTI-VIT [Concomitant]
  11. TYLENOL [Concomitant]
  12. SENNA-S [Concomitant]
  13. REVLIMID [Concomitant]
  14. PROVENTIL [Concomitant]
  15. PREVACID [Concomitant]
  16. NASACORT [Concomitant]
  17. AMBIEN [Concomitant]
     Dosage: 10 MG, UNK
  18. LIPITOR [Concomitant]
     Dosage: 10 MG, UNK
  19. PROCHLORPERAZ [Concomitant]
     Dosage: 10 MG, UNK
  20. ASPIRIN [Concomitant]
     Dosage: 81 MG, UNK
  21. PROCET                                  /USA/ [Concomitant]

REACTIONS (4)
  - Pulmonary thrombosis [Unknown]
  - Transient ischaemic attack [Unknown]
  - Thrombosis [Unknown]
  - Fatigue [Unknown]
